FAERS Safety Report 4659216-1 (Version None)
Quarter: 2005Q2

REPORT INFORMATION
  Report Type: 
  Country: None (occurrence: None)
  Receive Date: 20050511
  Receipt Date: 20050218
  Transmission Date: 20051028
  Serious: Yes (Life-Threatening)
  Sender: FDA-Public Use
  Company Number: 2005AP01250

PATIENT
  Age: 57 Year
  Sex: Male

DRUGS (1)
  1. IRESSA [Suspect]
     Indication: NEOPLASM MALIGNANT
     Route: 048

REACTIONS (1)
  - SEPSIS [None]
